FAERS Safety Report 9761275 (Version 1)
Quarter: 2013Q4

REPORT INFORMATION
  Report Type: Spontaneous
  Country: US (occurrence: US)
  Receive Date: 20131216
  Receipt Date: 20131216
  Transmission Date: 20140711
  Serious: No
  Sender: FDA-Public Use
  Company Number: US-FOUGERA-2013FO000264

PATIENT
  Age: 69 Year
  Sex: Male
  Weight: 93.07 kg

DRUGS (1)
  1. SOLARAZE [Suspect]
     Indication: PROPHYLAXIS
     Route: 061
     Dates: start: 20130715

REACTIONS (3)
  - Aphthous stomatitis [Recovering/Resolving]
  - Application site vesicles [Recovering/Resolving]
  - Off label use [Recovering/Resolving]
